FAERS Safety Report 10534488 (Version 1)
Quarter: 2014Q4

REPORT INFORMATION
  Report Type: Spontaneous
  Country: US (occurrence: None)
  Receive Date: 20141021
  Receipt Date: 20141021
  Transmission Date: 20150529
  Serious: Yes (Other)
  Sender: FDA-Public Use
  Company Number: None

PATIENT
  Age: 34 Year
  Sex: Male

DRUGS (1)
  1. BARACLUDE [Suspect]
     Active Substance: ENTECAVIR
     Route: 048
     Dates: start: 20141010, end: 20141018

REACTIONS (4)
  - Depression [None]
  - Insomnia [None]
  - Burning sensation [None]
  - Product substitution issue [None]

NARRATIVE: CASE EVENT DATE: 20141018
